FAERS Safety Report 9437655 (Version 6)
Quarter: 2014Q3

REPORT INFORMATION
  Report Type: Report from Study
  Country: IL (occurrence: IL)
  Receive Date: 20130802
  Receipt Date: 20140709
  Transmission Date: 20150326
  Serious: Yes (Hospitalization)
  Sender: FDA-Public Use
  Company Number: PHHO2012IL015128

PATIENT

DRUGS (20)
  1. METOPROLOL [Suspect]
     Active Substance: METOPROLOL
     Dosage: 100 MG, UNK
     Dates: start: 20121104, end: 20130122
  2. RAMIPRIL. [Concomitant]
     Active Substance: RAMIPRIL
     Indication: CARDIAC FAILURE CHRONIC
     Dosage: 2.5 MG, UNK
     Dates: start: 20121015
  3. ROSUVASTATIN [Concomitant]
     Active Substance: ROSUVASTATIN
     Indication: HYPERLIPIDAEMIA
     Dosage: 5 MG
     Dates: start: 20121015
  4. CARDILOC [Concomitant]
     Active Substance: BISOPROLOL FUMARATE
     Dosage: UNK
     Dates: start: 20121009
  5. ATORVASTATIN [Concomitant]
     Active Substance: ATORVASTATIN
     Indication: HYPERLIPIDAEMIA
     Dosage: 40 MG, UNK
  6. METOPROLOL [Suspect]
     Active Substance: METOPROLOL
     Dosage: 200 MG, QD
     Dates: start: 20130123
  7. BISOPROLOL [Suspect]
     Active Substance: BISOPROLOL
     Dosage: 1.25 MG, UNK
  8. ENALAPRIL [Suspect]
     Active Substance: ENALAPRIL
     Indication: CARDIAC FAILURE CHRONIC
     Dosage: 10 MG, BID
     Route: 048
     Dates: start: 20120916, end: 20121014
  9. COUMADIN [Concomitant]
     Active Substance: WARFARIN SODIUM
     Indication: LEFT VENTRICULAR DYSFUNCTION
     Dosage: 7.5 MG, UNK
     Dates: start: 20091026
  10. TAMSULOSIN [Concomitant]
     Active Substance: TAMSULOSIN
     Indication: PROSTATITIS
     Dosage: 0.4 MG, UNK
  11. EZETROL [Concomitant]
     Active Substance: EZETIMIBE
     Indication: HYPERLIPIDAEMIA
     Dosage: 10 MG, UNK
     Dates: start: 20130101
  12. METOPROLOL [Suspect]
     Active Substance: METOPROLOL
     Indication: CARDIAC FAILURE CHRONIC
     Dosage: 50 MG, BID
     Dates: start: 20121009
  13. METOPROLOL [Suspect]
     Active Substance: METOPROLOL
     Dosage: 200 MG, BID
     Dates: start: 20130728
  14. BEZAFIBRATE [Concomitant]
     Active Substance: BEZAFIBRATE
     Indication: HYPERLIPIDAEMIA
     Dosage: 400 MG, UNK
  15. CARDILOC [Concomitant]
     Active Substance: BISOPROLOL FUMARATE
     Indication: CARDIAC FAILURE CHRONIC
     Dosage: 2.5 MG, QD
     Dates: start: 20121004
  16. PLAVIX [Concomitant]
     Active Substance: CLOPIDOGREL BISULFATE
     Indication: MYOCARDIAL ISCHAEMIA
     Dosage: 75 MG, UNK
     Dates: start: 200909
  17. ASA [Concomitant]
     Active Substance: ASPIRIN
     Indication: MYOCARDIAL ISCHAEMIA
     Dosage: 100 MG, UNK
  18. METOPROLOL [Suspect]
     Active Substance: METOPROLOL
     Dosage: 100 MG, BID
     Dates: start: 20130722, end: 20130727
  19. RAMIPRIL. [Concomitant]
     Active Substance: RAMIPRIL
     Indication: MYOCARDIAL ISCHAEMIA
     Dosage: 5 MG, UNK
     Dates: start: 20130113
  20. SPIRONOLACTONE. [Concomitant]
     Active Substance: SPIRONOLACTONE
     Indication: CARDIAC FAILURE CHRONIC
     Dosage: 12.5 MG, UNK
     Dates: start: 20130519

REACTIONS (3)
  - Acute coronary syndrome [Recovered/Resolved]
  - Palpitations [Recovered/Resolved]
  - Ventricular tachycardia [Recovered/Resolved]

NARRATIVE: CASE EVENT DATE: 20121009
